FAERS Safety Report 16835276 (Version 2)
Quarter: 2019Q4

REPORT INFORMATION
  Report Type: Spontaneous
  Country: US (occurrence: US)
  Receive Date: 20190920
  Receipt Date: 20191118
  Transmission Date: 20200122
  Serious: Yes (Hospitalization)
  Sender: FDA-Public Use
  Company Number: US-NOVOPROD-685094

PATIENT
  Sex: Female

DRUGS (1)
  1. LEVEMIR [Suspect]
     Active Substance: INSULIN DETEMIR
     Indication: TYPE 2 DIABETES MELLITUS
     Dosage: 75 IU, QD(35 UNITS IN THE MORNING, 40 UNITS IN THE EVENING)
     Route: 058
     Dates: start: 201905

REACTIONS (7)
  - Pulmonary oedema [Unknown]
  - Pneumonia [Unknown]
  - Thrombosis [Recovered/Resolved]
  - Blood glucose increased [Unknown]
  - Fall [Unknown]
  - Colitis [Recovered/Resolved]
  - Localised infection [Recovered/Resolved]

NARRATIVE: CASE EVENT DATE: 2019
